FAERS Safety Report 5239792-0 (Version None)
Quarter: 2007Q1

REPORT INFORMATION
  Report Type: 
  Country: None (occurrence: None)
  Receive Date: 20070216
  Receipt Date: 20070209
  Transmission Date: 20070707
  Serious: Yes (Other)
  Sender: FDA-Public Use
  Company Number: 2007AP00774

PATIENT
  Age: 21 Year
  Sex: Male

DRUGS (9)
  1. SEROQUEL [Suspect]
     Indication: SCHIZOAFFECTIVE DISORDER
     Route: 048
     Dates: start: 20070101, end: 20070101
  2. SEROQUEL [Suspect]
     Route: 048
     Dates: start: 20070101
  3. SEROQUEL [Suspect]
     Route: 048
  4. EPILIM [Concomitant]
  5. CIPRAMIL [Concomitant]
  6. OLANZAPINE [Concomitant]
  7. CLOZAPINE [Concomitant]
  8. PROZAC [Concomitant]
  9. LITHIUM CARBONATE [Concomitant]

REACTIONS (8)
  - AGITATION [None]
  - POVERTY OF SPEECH [None]
  - PSYCHOMOTOR HYPERACTIVITY [None]
  - RESTLESSNESS [None]
  - TARDIVE DYSKINESIA [None]
  - URINARY RETENTION [None]
  - URINE ANALYSIS ABNORMAL [None]
  - URINE OUTPUT DECREASED [None]
